FAERS Safety Report 13993515 (Version 2)
Quarter: 2017Q4

REPORT INFORMATION
  Report Type: Spontaneous
  Country: US (occurrence: US)
  Receive Date: 20170920
  Receipt Date: 20171006
  Transmission Date: 20180321
  Serious: No
  Sender: FDA-Public Use
  Company Number: US-VIIV HEALTHCARE LIMITED-US2017GSK144483

PATIENT
  Sex: Female
  Weight: 101.59 kg

DRUGS (1)
  1. TRIUMEQ [Suspect]
     Active Substance: ABACAVIR SULFATE\DOLUTEGRAVIR SODIUM\LAMIVUDINE
     Indication: HIV INFECTION
     Dosage: 1 DF, QD
     Route: 048
     Dates: start: 20151015, end: 20170914

REACTIONS (5)
  - Virologic failure [Unknown]
  - Drug resistance [Unknown]
  - Viral load increased [Unknown]
  - Drug ineffective [Unknown]
  - Viral mutation identified [Not Recovered/Not Resolved]
